FAERS Safety Report 14614208 (Version 1)
Quarter: 2018Q1

REPORT INFORMATION
  Report Type: Spontaneous
  Country: SG (occurrence: SG)
  Receive Date: 20180308
  Receipt Date: 20180308
  Transmission Date: 20180509
  Serious: Yes (Other)
  Sender: FDA-Public Use
  Company Number: SG-JNJFOC-20170918992

PATIENT
  Age: 6 Decade
  Sex: Female

DRUGS (1)
  1. IMBRUVICA [Suspect]
     Active Substance: IBRUTINIB
     Indication: MANTLE CELL LYMPHOMA
     Route: 048

REACTIONS (5)
  - Flank pain [Unknown]
  - Perirenal haematoma [Unknown]
  - Haemorrhage [Unknown]
  - Leukocytosis [Recovering/Resolving]
  - Haemorrhagic diathesis [Unknown]
